FAERS Safety Report 21943030 (Version 1)
Quarter: 2023Q1

REPORT INFORMATION
  Report Type: Report from Study
  Country: CN (occurrence: None)
  Receive Date: 20230202
  Receipt Date: 20230202
  Transmission Date: 20230417
  Serious: Yes (Death, Other)
  Sender: FDA-Public Use
  Company Number: CN-ADIENNEP-2023AD000096

PATIENT
  Age: 59 Year
  Sex: Male

DRUGS (8)
  1. THIOTEPA [Suspect]
     Active Substance: THIOTEPA
     Indication: Autologous haematopoietic stem cell transplant
     Dosage: 250 MG/M2 IV ON DAY -11 TO DAY -10
     Route: 042
  2. BUSULFAN [Suspect]
     Active Substance: BUSULFAN
     Indication: Autologous haematopoietic stem cell transplant
     Dosage: 3.2 MG/KG IV ON DAY -7 TO DAY -5
     Route: 042
  3. CYCLOPHOSPHAMIDE [Suspect]
     Active Substance: CYCLOPHOSPHAMIDE
     Indication: Autologous haematopoietic stem cell transplant
     Dosage: 40 MG/KG IV ON DAY -3 TO DAY -2
     Route: 042
  4. ACYCLOVIR [Suspect]
     Active Substance: ACYCLOVIR
     Indication: Prophylaxis
     Dosage: FROM DAY 1 ()
  5. FILGRASTIM [Suspect]
     Active Substance: FILGRASTIM
     Dosage: 7-10 UG/KGX4 DAYS, FROM DAY 3 ()
  6. CLADRIBINE [Suspect]
     Active Substance: CLADRIBINE
     Indication: Autologous haematopoietic stem cell transplant
     Dosage: 5 MG/M2 IV ON DAY -11 TO DAY -8
     Route: 042
  7. CYTARABINE [Suspect]
     Active Substance: CYTARABINE
     Indication: Autologous haematopoietic stem cell transplant
     Dosage: 1.5 G/M2 IV ON DAY -11 TO DAY -8 (1.5G/M2)
     Route: 042
  8. ETOPOSIDE [Suspect]
     Active Substance: ETOPOSIDE
     Indication: Autologous haematopoietic stem cell transplant
     Dosage: 300 MG/M2 IV ON DAY -4
     Route: 042

REACTIONS (5)
  - Haematotoxicity [Unknown]
  - Pneumonia [Unknown]
  - Encephalitis [Unknown]
  - Gastrointestinal toxicity [Unknown]
  - Infection [Fatal]
